FAERS Safety Report 19060745 (Version 5)
Quarter: 2021Q3

REPORT INFORMATION
  Report Type: Report from Study
  Country: CA (occurrence: CA)
  Receive Date: 20210326
  Receipt Date: 20210907
  Transmission Date: 20211014
  Serious: Yes (Hospitalization, Other)
  Sender: FDA-Public Use
  Company Number: CA-BAUSCH-BL-2021-003773

PATIENT
  Age: 60 Year
  Sex: Male

DRUGS (5)
  1. SILIQ [Suspect]
     Active Substance: BRODALUMAB
     Dosage: 210 MG/ 1.5 ML
     Route: 058
     Dates: start: 202102
  2. CLOBETASOL PROPION [Concomitant]
     Indication: PRODUCT USED FOR UNKNOWN INDICATION
  3. SYMBICORT [Concomitant]
     Active Substance: BUDESONIDE\FORMOTEROL FUMARATE DIHYDRATE
     Indication: PRODUCT USED FOR UNKNOWN INDICATION
  4. VENTOLIN [Concomitant]
     Active Substance: ALBUTEROL SULFATE
     Indication: PRODUCT USED FOR UNKNOWN INDICATION
  5. SILIQ [Suspect]
     Active Substance: BRODALUMAB
     Indication: PSORIASIS
     Dosage: 210 MG/ 1.5 ML, WEEK 0, 1, 2
     Route: 058
     Dates: start: 20210119, end: 20210202

REACTIONS (18)
  - Psoriasis [Recovering/Resolving]
  - Respiratory arrest [Unknown]
  - Emphysema [Not Recovered/Not Resolved]
  - Disease recurrence [Recovering/Resolving]
  - Inflammation [Not Recovered/Not Resolved]
  - Oesophageal stenosis [Not Recovered/Not Resolved]
  - Abdominal pain upper [Not Recovered/Not Resolved]
  - Impaired work ability [Not Recovered/Not Resolved]
  - Illness [Unknown]
  - Colonoscopy [Unknown]
  - Hypersensitivity [Unknown]
  - Haemorrhage urinary tract [Not Recovered/Not Resolved]
  - Hernia pain [Not Recovered/Not Resolved]
  - Sleep apnoea syndrome [Unknown]
  - Patient dissatisfaction with treatment [Unknown]
  - Gastric ulcer [Unknown]
  - Dyspnoea [Not Recovered/Not Resolved]
  - Oxygen saturation increased [Unknown]

NARRATIVE: CASE EVENT DATE: 2021
